FAERS Safety Report 6364321-8 (Version None)
Quarter: 2009Q3

REPORT INFORMATION
  Report Type: 
  Country: None (occurrence: None)
  Receive Date: 20090919
  Receipt Date: 20090717
  Transmission Date: 20100115
  Serious: No
  Sender: FDA-Public Use
  Company Number: US-ABBOTT-09P-163-0586847-00

PATIENT
  Sex: Female

DRUGS (5)
  1. HUMIRA [Suspect]
     Indication: CROHN'S DISEASE
     Dates: start: 20081201, end: 20090504
  2. HUMIRA [Suspect]
     Dates: start: 20090504
  3. COLESTID [Concomitant]
     Indication: CROHN'S DISEASE
  4. PREVACID [Concomitant]
     Indication: CROHN'S DISEASE
  5. MERCAPTOPURINE [Concomitant]
     Indication: CROHN'S DISEASE

REACTIONS (1)
  - GASTROINTESTINAL PAIN [None]
